FAERS Safety Report 6310886-1 (Version None)
Quarter: 2009Q3

REPORT INFORMATION
  Report Type: 
  Country: None (occurrence: None)
  Receive Date: 20090812
  Receipt Date: 20090727
  Transmission Date: 20100115
  Serious: Yes (Disabling)
  Sender: FDA-Public Use
  Company Number: 2009-0346

PATIENT
  Age: 53 Year
  Sex: Female

DRUGS (1)
  1. LANREOTIDE AUTOGEL  (LANREOTIDE ACETATE) [Suspect]
     Indication: ACROMEGALY
     Dosage: (90 MG, 1 IN 4 WK) SUBCUTANEOUS 6 CYCLE
     Route: 058
     Dates: start: 20080612, end: 20081202

REACTIONS (1)
  - BACK PAIN [None]
